FAERS Safety Report 5098946-7 (Version None)
Quarter: 2006Q3

REPORT INFORMATION
  Report Type: 
  Country: None (occurrence: None)
  Receive Date: 20060907
  Receipt Date: 20060830
  Transmission Date: 20061208
  Serious: Yes (Hospitalization)
  Sender: FDA-Public Use
  Company Number: DE-SANOFI-SYNTHELABO-F04200600175

PATIENT
  Sex: Male

DRUGS (7)
  1. LANTUS [Concomitant]
  2. KEVATRIL [Concomitant]
     Indication: PREMEDICATION
     Route: 065
     Dates: start: 20060601, end: 20060601
  3. FORTECORTIN [Concomitant]
     Indication: PREMEDICATION
     Route: 065
     Dates: start: 20060601, end: 20060601
  4. DOCETAXEL [Suspect]
     Indication: GASTRIC CANCER
     Route: 041
     Dates: start: 20060628, end: 20060628
  5. FOLINIC ACID [Suspect]
     Indication: GASTRIC CANCER
     Route: 041
     Dates: start: 20060628, end: 20060628
  6. FLUOROURACIL [Suspect]
     Indication: GASTRIC CANCER
     Route: 041
     Dates: start: 20060628, end: 20060628
  7. ELOXATIN [Suspect]
     Indication: GASTRIC CANCER
     Route: 041
     Dates: start: 20060628, end: 20060628

REACTIONS (1)
  - CEREBROVASCULAR ACCIDENT [None]
